FAERS Safety Report 13316749 (Version 1)
Quarter: 2017Q1

REPORT INFORMATION
  Report Type: Spontaneous
  Country: FR (occurrence: FR)
  Receive Date: 20170310
  Receipt Date: 20170310
  Transmission Date: 20170428
  Serious: Yes (Hospitalization)
  Sender: FDA-Public Use
  Company Number: FR-ACCORD-048966

PATIENT
  Age: 65 Year
  Sex: Female

DRUGS (8)
  1. PROPRANOLOL [Concomitant]
     Active Substance: PROPRANOLOL HYDROCHLORIDE
     Dosage: HALF A TABLET A DAY BY ORAL ROUTE?STRENGTH: 40 MG
     Route: 048
  2. NIVESTIM [Concomitant]
     Active Substance: FILGRASTIM
     Dosage: JANUARY 2017 DURING 5 DAYS
     Route: 042
     Dates: start: 201701
  3. LETROZOLE. [Concomitant]
     Active Substance: LETROZOLE
     Route: 048
     Dates: start: 20170106
  4. ENDOXAN [Suspect]
     Active Substance: CYCLOPHOSPHAMIDE
     Indication: BREAST CANCER
     Dosage: STRENGTH: 1000 MG?ONE SINGLE DOSE?LYOPHILISATE FOR SOLUTION FOR INJECTION
     Route: 042
     Dates: start: 20170119, end: 20170119
  5. SOLUPRED [Concomitant]
     Active Substance: PREDNISOLONE
     Indication: PROPHYLAXIS
     Route: 048
     Dates: start: 20170118, end: 20170120
  6. LEVOTHYROX [Concomitant]
     Active Substance: LEVOTHYROXINE
     Dosage: STRENGTH: 125 UG?TABLET BREACKABLE
     Route: 048
  7. DOCETAXEL ACCORD [Suspect]
     Active Substance: DOCETAXEL
     Indication: BREAST CANCER
     Dosage: STRENGTH: 160 MG/8 ML?ONE SINGLE DOSE?INTRAVENOUS (INFUSION)
     Route: 042
     Dates: start: 20170119, end: 20170119
  8. ONDANSETRON [Concomitant]
     Active Substance: ONDANSETRON
     Route: 048
     Dates: start: 20170119, end: 20170122

REACTIONS (2)
  - Neutropenic colitis [Recovered/Resolved]
  - Aplasia [Unknown]

NARRATIVE: CASE EVENT DATE: 20170123
